FAERS Safety Report 23368114 (Version 3)
Quarter: 2024Q1

REPORT INFORMATION
  Report Type: Report from Study
  Country: US (occurrence: US)
  Receive Date: 20240105
  Receipt Date: 20240319
  Transmission Date: 20240410
  Serious: No
  Sender: FDA-Public Use
  Company Number: US-DECIPHERA PHARMACEUTICALS LLC-2023US001150

PATIENT
  Age: 53 Year
  Sex: Male

DRUGS (2)
  1. QINLOCK [Suspect]
     Active Substance: RIPRETINIB
     Indication: Gastrointestinal stromal tumour
     Dosage: 150 MILLIGRAM, QD
     Route: 048
     Dates: start: 20231201, end: 202401
  2. QINLOCK [Suspect]
     Active Substance: RIPRETINIB
     Dosage: 100 MILLIGRAM, QD
     Route: 048
     Dates: start: 20240123

REACTIONS (21)
  - Skin exfoliation [Unknown]
  - Blister [Unknown]
  - Skin disorder [Unknown]
  - Erythema [Unknown]
  - Skin burning sensation [Unknown]
  - White blood cell count increased [Unknown]
  - Epistaxis [Recovering/Resolving]
  - Laboratory test abnormal [Unknown]
  - Adverse event [Unknown]
  - Cyst [Unknown]
  - Blood chloride decreased [Unknown]
  - Skin wrinkling [Unknown]
  - Brain fog [Unknown]
  - Gingival bleeding [Not Recovered/Not Resolved]
  - Blood creatinine increased [Recovering/Resolving]
  - Asthenia [Unknown]
  - Blood sodium decreased [Unknown]
  - Nausea [Unknown]
  - Alopecia [Unknown]
  - Palmar-plantar erythrodysaesthesia syndrome [Unknown]
  - Hypertension [Unknown]

NARRATIVE: CASE EVENT DATE: 20231201
